FAERS Safety Report 10537228 (Version 1)
Quarter: 2014Q4

REPORT INFORMATION
  Report Type: Spontaneous
  Country: MY (occurrence: MY)
  Receive Date: 20141023
  Receipt Date: 20141023
  Transmission Date: 20150529
  Serious: Yes (Other)
  Sender: FDA-Public Use
  Company Number: MY-PFIZER INC-2014287826

PATIENT
  Age: 22 Year
  Sex: Female

DRUGS (6)
  1. BENZHEXOL [Concomitant]
     Active Substance: TRIHEXYPHENIDYL
  2. ZELDOX [Suspect]
     Active Substance: ZIPRASIDONE
     Indication: AGITATION
     Dosage: 20 MG, SINGLE
     Route: 030
     Dates: start: 20130408, end: 20130408
  3. MANACE [Suspect]
     Active Substance: HALOPERIDOL
     Indication: AGITATION
     Dosage: 5 MG, AS NEEDED
     Route: 030
  4. CLONAZEPAM. [Concomitant]
     Active Substance: CLONAZEPAM
  5. OLANZAPINE. [Concomitant]
     Active Substance: OLANZAPINE
  6. VALPROATE SODIUM. [Concomitant]
     Active Substance: VALPROATE SODIUM

REACTIONS (1)
  - Electrocardiogram T wave inversion [Recovered/Resolved]

NARRATIVE: CASE EVENT DATE: 20130409
